FAERS Safety Report 9346279 (Version 2)
Quarter: 2013Q3

REPORT INFORMATION
  Report Type: Report from Study
  Country: US (occurrence: US)
  Receive Date: 20130613
  Receipt Date: 20130708
  Transmission Date: 20140515
  Serious: Yes (Hospitalization)
  Sender: FDA-Public Use
  Company Number: US-ACTELION-A-NJ2012-71408

PATIENT
  Age: 79 Year
  Sex: Female

DRUGS (2)
  1. TRACLEER [Suspect]
     Indication: PULMONARY ARTERIAL HYPERTENSION
     Dosage: 62.5 MG, BID
     Route: 048
     Dates: start: 20110215
  2. ARTHROTEC [Concomitant]

REACTIONS (4)
  - Gastric ulcer haemorrhage [Recovering/Resolving]
  - Gastric ulcer [Unknown]
  - Arthritis [Unknown]
  - Arthralgia [Unknown]
